FAERS Safety Report 6162518-3 (Version None)
Quarter: 2009Q2

REPORT INFORMATION
  Report Type: 
  Country: None (occurrence: None)
  Receive Date: 20090417
  Receipt Date: 20090402
  Transmission Date: 20091009
  Serious: Yes (Other)
  Sender: FDA-Public Use
  Company Number: 2009S1005903

PATIENT
  Sex: Female

DRUGS (6)
  1. METFORMIN HCL [Suspect]
     Indication: DIABETES MELLITUS
     Dosage: 500 MG; 3 TIMES A DAY;
     Dates: start: 20070212
  2. SIMVASTATIN [Suspect]
     Indication: DRUG USE FOR UNKNOWN INDICATION
     Dosage: 10 MG;
     Dates: start: 20040901
  3. CALCICHEW D3 [Concomitant]
  4. FOSAVANCE [Concomitant]
  5. GAVISCON [Concomitant]
  6. PARACETAMOL [Concomitant]

REACTIONS (2)
  - ALOPECIA [None]
  - DIARRHOEA [None]
